FAERS Safety Report 22973629 (Version 2)
Quarter: 2024Q1

REPORT INFORMATION
  Report Type: Spontaneous
  Country: US (occurrence: US)
  Receive Date: 20230922
  Receipt Date: 20240111
  Transmission Date: 20240410
  Serious: Yes (Other)
  Sender: FDA-Public Use
  Company Number: US-PFIZER INC-202300250214

PATIENT
  Age: 46 Year
  Sex: Female
  Weight: 59.87 kg

DRUGS (4)
  1. OXBRYTA [Suspect]
     Active Substance: VOXELOTOR
     Indication: Sickle cell anaemia
     Dosage: 1500 MG, 1X/DAY IN THE MORNING
     Route: 048
     Dates: start: 20220920
  2. OXBRYTA [Suspect]
     Active Substance: VOXELOTOR
     Dosage: 1500 MG, 1X/DAY
     Route: 048
     Dates: start: 2022
  3. OXBRYTA [Suspect]
     Active Substance: VOXELOTOR
     Dosage: 3 TABLETS, ONCE DAILY
     Route: 048
     Dates: start: 20221018
  4. HYDROXYUREA [Suspect]
     Active Substance: HYDROXYUREA
     Indication: Sickle cell anaemia
     Dosage: 500MG CAPSULES AND TAKES TWO A DAY AT NIGHT TIME
     Route: 048
     Dates: start: 2022

REACTIONS (1)
  - Haemoglobin decreased [Recovering/Resolving]

NARRATIVE: CASE EVENT DATE: 20230701
